FAERS Safety Report 5412733-9 (Version None)
Quarter: 2007Q3

REPORT INFORMATION
  Report Type: 
  Country: None (occurrence: None)
  Receive Date: 20070813
  Receipt Date: 20070731
  Transmission Date: 20080115
  Serious: Yes (Other)
  Sender: FDA-Public Use
  Company Number: TR-AMGEN-US238277

PATIENT

DRUGS (3)
  1. ENBREL [Suspect]
     Indication: FAMILIAL MEDITERRANEAN FEVER
     Route: 058
  2. COLCHICINE [Concomitant]
  3. THALIDOMIDE [Concomitant]

REACTIONS (1)
  - ANAPHYLACTIC REACTION [None]
